FAERS Safety Report 6574483-5 (Version None)
Quarter: 2010Q1

REPORT INFORMATION
  Report Type: 
  Country: None (occurrence: None)
  Receive Date: 20100209
  Receipt Date: 20090914
  Transmission Date: 20100710
  Serious: No
  Sender: FDA-Public Use
  Company Number: A0807248A

PATIENT
  Age: 54 Year
  Sex: Female

DRUGS (3)
  1. PAROXETINE HCL [Suspect]
     Dosage: 20MG PER DAY
     Route: 048
     Dates: end: 20090903
  2. BUSPAR [Concomitant]
  3. MULTI-VITAMINS [Concomitant]

REACTIONS (5)
  - CHILLS [None]
  - DIZZINESS [None]
  - HYPERHIDROSIS [None]
  - INSOMNIA [None]
  - NIGHTMARE [None]
